FAERS Safety Report 5719756-0 (Version None)
Quarter: 2008Q2

REPORT INFORMATION
  Report Type: 
  Country: None (occurrence: None)
  Receive Date: 20080428
  Receipt Date: 20080418
  Transmission Date: 20081010
  Serious: Yes (Life-Threatening, Hospitalization)
  Sender: FDA-Public Use
  Company Number: FR-ABBOTT-08P-056-0448230-00

PATIENT
  Sex: Male

DRUGS (1)
  1. DEPAKOTE [Suspect]
     Indication: SCHIZOPHRENIA
     Route: 048

REACTIONS (11)
  - ARTHRALGIA [None]
  - CENTRAL PONTINE MYELINOLYSIS [None]
  - CEREBRAL HAEMORRHAGE [None]
  - COGNITIVE DISORDER [None]
  - DUST INHALATION PNEUMOPATHY [None]
  - EXTRAPYRAMIDAL DISORDER [None]
  - HYPERNATRAEMIA [None]
  - NEPHROGENIC DIABETES INSIPIDUS [None]
  - QUADRIPLEGIA [None]
  - RENAL FAILURE [None]
  - RESPIRATORY DISTRESS [None]
